FAERS Safety Report 15823818 (Version 1)
Quarter: 2019Q1

REPORT INFORMATION
  Report Type: Spontaneous
  Country: US (occurrence: US)
  Receive Date: 20190114
  Receipt Date: 20190114
  Transmission Date: 20190417
  Serious: No
  Sender: FDA-Public Use
  Company Number: US-PFIZER INC-2019016621

PATIENT
  Age: 1 Year
  Sex: Female

DRUGS (1)
  1. REVATIO [Suspect]
     Active Substance: SILDENAFIL CITRATE
     Dosage: 1 ML, 3X/DAY (EVERY 8 HR)

REACTIONS (2)
  - Irritability [Unknown]
  - Product dose omission [Unknown]
